FAERS Safety Report 22321610 (Version 1)
Quarter: 2023Q2

REPORT INFORMATION
  Report Type: Spontaneous
  Country: US (occurrence: US)
  Receive Date: 20230515
  Receipt Date: 20230515
  Transmission Date: 20230721
  Serious: No
  Sender: FDA-Public Use
  Company Number: US-BAUSCHBL-2023BNL003987

PATIENT
  Sex: Male

DRUGS (1)
  1. DORZOLAMIDE HYDROCHLORIDE [Suspect]
     Active Substance: DORZOLAMIDE HYDROCHLORIDE
     Indication: Product used for unknown indication
     Route: 065

REACTIONS (7)
  - Instillation site erythema [Recovering/Resolving]
  - Instillation site swelling [Recovering/Resolving]
  - Instillation site lacrimation [Recovering/Resolving]
  - Eyelid margin crusting [Recovering/Resolving]
  - Instillation site pain [Recovering/Resolving]
  - Instillation site pruritus [Recovering/Resolving]
  - Product dose omission issue [Unknown]
